APPROVED DRUG PRODUCT: MESALAMINE
Active Ingredient: MESALAMINE
Strength: 800MG
Dosage Form/Route: TABLET, DELAYED RELEASE;ORAL
Application: A203286 | Product #001 | TE Code: AB
Applicant: ZYDUS PHARMACEUTICALS USA INC
Approved: Jul 21, 2017 | RLD: No | RS: Yes | Type: RX